FAERS Safety Report 19271173 (Version 1)
Quarter: 2021Q2

REPORT INFORMATION
  Report Type: Spontaneous
  Country: GB (occurrence: GB)
  Receive Date: 20210518
  Receipt Date: 20210518
  Transmission Date: 20210717
  Serious: Yes (Disabling, Other)
  Sender: FDA-Public Use
  Company Number: GB-ASTRAZENECA-2021A409569

PATIENT
  Age: 78 Year
  Sex: Female
  Weight: 110.1 kg

DRUGS (13)
  1. RAMIPRIL. [Concomitant]
     Active Substance: RAMIPRIL
     Dosage: 2.5, EVERY DAY
     Route: 065
     Dates: start: 20210312
  2. CLOTRIMAZOLE. [Concomitant]
     Active Substance: CLOTRIMAZOLE
     Dosage: APPLY TWO TO THREE TIMES DAILY.
     Route: 065
     Dates: start: 20210406
  3. RIVAROXABAN [Concomitant]
     Active Substance: RIVAROXABAN
     Dosage: 20, AT THE SAME TIME EACH DAY WITH FOOD., EVERY DAY
     Route: 065
     Dates: start: 20210312
  4. SALAMOL [Concomitant]
     Active Substance: ALBUTEROL
     Dosage: 1?2 PUFFS UP TO FOUR TIMES DAILY AS REQUIRED.
     Route: 055
     Dates: start: 20210312
  5. FUROSEMIDE. [Concomitant]
     Active Substance: FUROSEMIDE
     Dosage: 1, 20 MG / 40 MG., EVERY DAY
     Route: 065
     Dates: start: 20210312, end: 20210419
  6. DUAKLIR GENUAIR [Suspect]
     Active Substance: ACLIDINIUM BROMIDE\FORMOTEROL FUMARATE
     Dosage: TWO TIMES A DAY
     Route: 055
     Dates: start: 20210430
  7. ULTIBRO BREEZHALER [Concomitant]
     Active Substance: GLYCOPYRRONIUM\INDACATEROL
     Dosage: 1, EVERY DAY
     Route: 055
     Dates: start: 20210312, end: 20210430
  8. AMOXICILLIN. [Concomitant]
     Active Substance: AMOXICILLIN
     Dosage: 500, THREE TIMES A DAY, AS RESCUE PACK.
     Route: 065
     Dates: start: 20210419
  9. PREDNISOLONE. [Concomitant]
     Active Substance: PREDNISOLONE
     Dosage: 30, FOR FIVE DAYS., EVERY DAY
     Route: 065
     Dates: start: 20210419
  10. BISOPROLOL [Concomitant]
     Active Substance: BISOPROLOL
     Dosage: 10, EVERY DAY
     Route: 065
     Dates: start: 20210312
  11. TRIMETHOPRIM. [Concomitant]
     Active Substance: TRIMETHOPRIM
     Dosage: 200, TWO TIMES A DAY
     Route: 065
     Dates: start: 20210406
  12. FLUOXETINE [Concomitant]
     Active Substance: FLUOXETINE HYDROCHLORIDE
     Dosage: 40, EVERY DAY
     Route: 065
     Dates: start: 20210312
  13. LANSOPRAZOLE. [Concomitant]
     Active Substance: LANSOPRAZOLE
     Dosage: 15, 20?30 MINUTES BEFORE FOOD., EVERY DAY
     Route: 065
     Dates: start: 20210312

REACTIONS (1)
  - Dysphagia [Recovering/Resolving]

NARRATIVE: CASE EVENT DATE: 20210407
